FAERS Safety Report 8053619-3 (Version None)
Quarter: 2012Q1

REPORT INFORMATION
  Report Type: 
  Country: None (occurrence: None)
  Receive Date: 20120118
  Receipt Date: 20120109
  Transmission Date: 20120608
  Serious: Yes (Hospitalization)
  Sender: FDA-Public Use
  Company Number: US-BAYER-2010-002164

PATIENT
  Age: 23 Year
  Sex: Female
  Weight: 108.84 kg

DRUGS (3)
  1. YAZ [Suspect]
     Dosage: UNK
     Dates: start: 20080301, end: 20100301
  2. METHADONE HCL [Concomitant]
  3. PERCOCET [Concomitant]

REACTIONS (1)
  - CHOLELITHIASIS [None]
